FAERS Safety Report 6824351-6 (Version None)
Quarter: 2010Q3

REPORT INFORMATION
  Report Type: 
  Country: None (occurrence: None)
  Receive Date: 20100708
  Receipt Date: 20061024
  Transmission Date: 20110219
  Serious: No
  Sender: FDA-Public Use
  Company Number: US-PFIZER INC-2006131774

PATIENT
  Sex: Female
  Weight: 97.52 kg

DRUGS (3)
  1. CHANTIX [Suspect]
     Indication: EX-TOBACCO USER
     Route: 048
     Dates: start: 20061002
  2. UNIPHYL [Concomitant]
  3. ALTACE [Concomitant]
     Indication: HYPERTENSION

REACTIONS (3)
  - ABNORMAL DREAMS [None]
  - HEADACHE [None]
  - INSOMNIA [None]
